FAERS Safety Report 21353653 (Version 1)
Quarter: 2022Q3

REPORT INFORMATION
  Report Type: Spontaneous
  Country: GB (occurrence: None)
  Receive Date: 20220920
  Receipt Date: 20220920
  Transmission Date: 20221027
  Serious: Yes (Other)
  Sender: FDA-Public Use
  Company Number: GB-MLMSERVICE-20220901-3771836-1

PATIENT
  Age: 70 Year
  Sex: Male

DRUGS (2)
  1. CARBOPLATIN [Suspect]
     Active Substance: CARBOPLATIN
     Indication: Neuroendocrine carcinoma of the bladder
     Dosage: 4 CYCLES
     Route: 042
  2. ETOPOSIDE [Concomitant]
     Active Substance: ETOPOSIDE
     Indication: Neuroendocrine carcinoma of the bladder
     Dosage: UNKNOWN
     Route: 065

REACTIONS (7)
  - Ocular toxicity [Not Recovered/Not Resolved]
  - Arteriosclerotic retinopathy [Not Recovered/Not Resolved]
  - Optic disc haemorrhage [Not Recovered/Not Resolved]
  - Pupillary reflex impaired [Not Recovered/Not Resolved]
  - Optic atrophy [Not Recovered/Not Resolved]
  - Retinal oedema [Recovered/Resolved]
  - Subretinal fluid [Recovered/Resolved]
